FAERS Safety Report 7305588-9 (Version None)
Quarter: 2011Q1

REPORT INFORMATION
  Report Type: 
  Country: None (occurrence: None)
  Receive Date: 20110222
  Receipt Date: 20110215
  Transmission Date: 20110831
  Serious: Yes (Death)
  Sender: FDA-Public Use
  Company Number: JP-AMGEN-JPNCT2011009995

PATIENT
  Age: 56 Year
  Sex: Male

DRUGS (7)
  1. PANITUMUMAB [Suspect]
     Indication: COLORECTAL CANCER METASTATIC
     Dosage: 600 MG, Q2WK
     Route: 041
     Dates: start: 20101018
  2. BAYSLOWTH [Concomitant]
     Dosage: UNK
     Route: 048
  3. OXALIPLATIN [Concomitant]
     Indication: COLORECTAL CANCER
     Route: 041
     Dates: start: 20101018
  4. DIOVAN [Concomitant]
     Dosage: UNK
     Route: 048
  5. CALCIUM LEVOFOLINATE [Concomitant]
     Indication: COLORECTAL CANCER
     Dosage: UNK
     Route: 041
     Dates: start: 20101018
  6. NOVOLIN 30R                        /00030505/ [Concomitant]
     Dosage: UNK
     Route: 042
  7. FLUOROURACIL [Concomitant]
     Indication: COLORECTAL CANCER
     Dosage: UNK
     Route: 042
     Dates: start: 20101018

REACTIONS (1)
  - DEATH [None]
